FAERS Safety Report 6761328-3 (Version None)
Quarter: 2010Q2

REPORT INFORMATION
  Report Type: 
  Country: None (occurrence: None)
  Receive Date: 20100608
  Receipt Date: 20100603
  Transmission Date: 20101027
  Serious: Yes (Death)
  Sender: FDA-Public Use
  Company Number: US-GILEAD-2010-0029563

PATIENT
  Sex: Female
  Weight: 45.854 kg

DRUGS (12)
  1. LETAIRIS [Suspect]
     Indication: PULMONARY ARTERIAL HYPERTENSION
     Route: 048
     Dates: start: 20100507, end: 20100602
  2. COUMADIN [Concomitant]
  3. LASIX [Concomitant]
  4. ENALAPRIL [Concomitant]
  5. DILTIAZEM [Concomitant]
  6. REGLAN [Concomitant]
  7. NEXIUM [Concomitant]
  8. SYNTHROID [Concomitant]
  9. COMBIGAN [Concomitant]
  10. TRAVATAN [Concomitant]
  11. CALCIUM CARB [Concomitant]
  12. MAG CITRATE [Concomitant]

REACTIONS (1)
  - DEATH [None]
